FAERS Safety Report 9995548 (Version 1)
Quarter: 2014Q1

REPORT INFORMATION
  Report Type: Spontaneous
  Country: US (occurrence: None)
  Receive Date: 20140306
  Receipt Date: 20140306
  Transmission Date: 20141002
  Serious: Yes (Hospitalization)
  Sender: FDA-Public Use
  Company Number: IMP_07492_2014

PATIENT
  Age: 63 Year
  Sex: Male

DRUGS (1)
  1. METFORMIN [Suspect]
     Indication: TYPE 2 DIABETES MELLITUS

REACTIONS (11)
  - Abdominal pain [None]
  - Hypothermia [None]
  - Tachycardia [None]
  - Hypotension [None]
  - Lactic acidosis [None]
  - Haemodialysis [None]
  - Haemodynamic instability [None]
  - Metabolic acidosis [None]
  - Infection [None]
  - Renal tubular necrosis [None]
  - Prerenal failure [None]
